FAERS Safety Report 4977256-X (Version None)
Quarter: 2006Q2

REPORT INFORMATION
  Report Type: 
  Country: None (occurrence: None)
  Receive Date: 20060419
  Receipt Date: 20050606
  Transmission Date: 20061013
  Serious: Yes (Death, Hospitalization)
  Sender: FDA-Public Use
  Company Number: US-MERCK-0506USA01054

PATIENT
  Age: 79 Year
  Sex: Female

DRUGS (4)
  1. VIOXX [Suspect]
     Indication: ARTHRALGIA
     Route: 048
     Dates: start: 20030401, end: 20031121
  2. VIOXX [Suspect]
     Indication: MONARTHRITIS
     Route: 048
     Dates: start: 20030401, end: 20031121
  3. ASPIRIN [Concomitant]
     Route: 065
  4. TYLENOL (CAPLET) [Concomitant]
     Route: 065

REACTIONS (19)
  - ANAEMIA [None]
  - ANOREXIA [None]
  - ASTHENIA [None]
  - ATRIAL FIBRILLATION [None]
  - CARDIO-RESPIRATORY ARREST [None]
  - CHEST PAIN [None]
  - DRUG ADMINISTRATION ERROR [None]
  - DUODENAL ULCER [None]
  - ELECTROMECHANICAL DISSOCIATION [None]
  - GASTRIC ULCER [None]
  - IRON DEFICIENCY ANAEMIA [None]
  - LETHARGY [None]
  - LOSS OF CONSCIOUSNESS [None]
  - MUSCLE RIGIDITY [None]
  - MYOCARDIAL INFARCTION [None]
  - PNEUMONIA [None]
  - THERAPY NON-RESPONDER [None]
  - VENTRICULAR FIBRILLATION [None]
  - VOMITING [None]
